FAERS Safety Report 5495602-8 (Version None)
Quarter: 2007Q4

REPORT INFORMATION
  Report Type: 
  Country: None (occurrence: None)
  Receive Date: 20071015
  Receipt Date: 20060929
  Transmission Date: 20080405
  Serious: Yes (Life-Threatening)
  Sender: FDA-Public Use
  Company Number: S06-USA-04052-01

PATIENT
  Age: 58 Year
  Sex: Male
  Weight: 95.2554 kg

DRUGS (7)
  1. LEXAPRO [Suspect]
     Indication: DEPRESSION
     Dosage: 0 MG QD PO
     Route: 048
     Dates: start: 20060809, end: 20060814
  2. COMBUNOX [Suspect]
     Indication: PAIN
     Dosage: 5 MG TID PO
     Route: 048
     Dates: start: 20060301
  3. SYNTHROID [Concomitant]
  4. CORTEF [Concomitant]
  5. XANAX [Concomitant]
  6. LISINOPRIL [Concomitant]
  7. ALBUTEROL [Concomitant]

REACTIONS (8)
  - ABDOMINAL PAIN UPPER [None]
  - ASTHENIA [None]
  - DEPRESSION [None]
  - DRUG INEFFECTIVE [None]
  - DRUG INTERACTION [None]
  - MALAISE [None]
  - NAUSEA [None]
  - SUICIDAL IDEATION [None]
